FAERS Safety Report 9730484 (Version 2)
Quarter: 2013Q4

REPORT INFORMATION
  Report Type: Spontaneous
  Country: US (occurrence: US)
  Receive Date: 20131202
  Receipt Date: 20131218
  Transmission Date: 20140711
  Serious: Yes (Death)
  Sender: FDA-Public Use
  Company Number: US-PFIZER INC-2013340122

PATIENT
  Age: 81 Year
  Sex: Male
  Weight: 96.15 kg

DRUGS (1)
  1. SUTENT [Suspect]
     Indication: RENAL CANCER
     Dosage: 25 MG, CYCLIC (DAILY X 4WK, 2 WKS OFF)
     Route: 048
     Dates: start: 20131010, end: 201311

REACTIONS (1)
  - Death [Fatal]
